FAERS Safety Report 4724518-7 (Version None)
Quarter: 2005Q3

REPORT INFORMATION
  Report Type: 
  Country: None (occurrence: None)
  Receive Date: 20050726
  Receipt Date: 20050713
  Transmission Date: 20060218
  Serious: Yes (Death)
  Sender: FDA-Public Use
  Company Number: AU-BOEHRINGER INGELHEIM PHARMACEUTICALS, INC.-2005-BP-11737AU

PATIENT
  Sex: Male
  Weight: 62 kg

DRUGS (12)
  1. TIPRANAVIR / RITONAVIR CAPSULES, SOFTGELATIN [Suspect]
     Indication: HIV INFECTION
     Dosage: 1000/400 MG/MG
     Route: 048
     Dates: start: 20050527, end: 20050621
  2. TENOFOVIR [Concomitant]
     Indication: HIV INFECTION
     Route: 048
     Dates: start: 20050527, end: 20050621
  3. T20 (ENFUVIRTIDE) [Concomitant]
     Indication: HIV INFECTION
     Route: 058
     Dates: start: 20050527, end: 20050621
  4. LAMIVUDINE [Concomitant]
     Indication: HIV INFECTION
     Route: 048
     Dates: start: 20050527, end: 20050621
  5. LIPITOR [Concomitant]
     Route: 048
  6. BACTRIM [Concomitant]
  7. AZITHROMYCIN [Concomitant]
  8. ROSIGLITAZONE [Concomitant]
  9. VANCICLOVIR [Concomitant]
  10. FLUCONAZOLE [Concomitant]
  11. VITAMINS [Concomitant]
  12. HERBAL MEDICATIONS [Concomitant]

REACTIONS (1)
  - CENTRAL NERVOUS SYSTEM LYMPHOMA [None]
